FAERS Safety Report 5246410-4 (Version None)
Quarter: 2007Q1

REPORT INFORMATION
  Report Type: 
  Country: None (occurrence: None)
  Receive Date: 20070226
  Receipt Date: 20070215
  Transmission Date: 20070707
  Serious: Yes (Other)
  Sender: FDA-Public Use
  Company Number: GB-JNJFOC-20061203360

PATIENT
  Age: 47 Year
  Sex: Female

DRUGS (3)
  1. RISPERDAL [Suspect]
     Indication: MANIA
     Route: 065
  2. RISPERDAL [Suspect]
     Indication: PSYCHOTIC DISORDER
     Route: 065
  3. DIAZEPAM [Concomitant]
     Indication: SEDATION
     Route: 048
     Dates: start: 20061202, end: 20061208

REACTIONS (2)
  - RESPIRATORY DEPRESSION [None]
  - SPEECH DISORDER [None]
